FAERS Safety Report 8597594-1 (Version None)
Quarter: 2012Q3

REPORT INFORMATION
  Report Type: 
  Country: None (occurrence: None)
  Receive Date: 20120816
  Receipt Date: 20120807
  Transmission Date: 20120928
  Serious: Yes (Hospitalization)
  Sender: FDA-Public Use
  Company Number: US-BAYER-2012-010981

PATIENT
  Age: 20 Year
  Sex: Female
  Weight: 54.422 kg

DRUGS (1)
  1. YAZ [Suspect]
     Indication: ACNE
     Dosage: UNK
     Dates: start: 20090401, end: 20090424

REACTIONS (4)
  - THROMBOSIS [None]
  - LIVER DISORDER [None]
  - DEEP VEIN THROMBOSIS [None]
  - INJURY [None]
